FAERS Safety Report 18506724 (Version 1)
Quarter: 2020Q4

REPORT INFORMATION
  Report Type: Spontaneous
  Country: US (occurrence: US)
  Receive Date: 20201113
  Receipt Date: 20201113
  Transmission Date: 20210114
  Serious: No
  Sender: FDA-Public Use
  Company Number: None

PATIENT
  Age: 64 Year
  Sex: Female

DRUGS (1)
  1. SOTALOL 80MG TABLET [Suspect]
     Active Substance: SOTALOL
     Dosage: ?          OTHER FREQUENCY:Q12H;?
     Route: 048
     Dates: start: 20201012

REACTIONS (2)
  - Arrhythmia [None]
  - Product substitution issue [None]

NARRATIVE: CASE EVENT DATE: 20201113
